FAERS Safety Report 9695036 (Version 1)
Quarter: 2013Q4

REPORT INFORMATION
  Report Type: Report from Study
  Country: US (occurrence: US)
  Receive Date: 20131119
  Receipt Date: 20131119
  Transmission Date: 20140711
  Serious: Yes (Hospitalization)
  Sender: FDA-Public Use
  Company Number: US-JNJFOC-20131105263

PATIENT
  Age: 67 Year
  Sex: Female

DRUGS (2)
  1. XARELTO [Suspect]
     Indication: CEREBROVASCULAR ACCIDENT PROPHYLAXIS
     Dosage: DOSE : 15 UNITS UNSPECIFIED
     Route: 048
     Dates: start: 20130626
  2. XARELTO [Suspect]
     Indication: ATRIAL FIBRILLATION
     Dosage: DOSE : 15 UNITS UNSPECIFIED
     Route: 048
     Dates: start: 20130626

REACTIONS (5)
  - Syncope [Recovered/Resolved]
  - Oesophageal achalasia [Recovered/Resolved]
  - Fall [Unknown]
  - Nausea [Unknown]
  - Vomiting [Unknown]
